FAERS Safety Report 9890806 (Version 1)
Quarter: 2014Q1

REPORT INFORMATION
  Report Type: Spontaneous
  Country: US (occurrence: None)
  Receive Date: 20140207
  Receipt Date: 20140207
  Transmission Date: 20141002
  Serious: Yes (Disabling)
  Sender: FDA-Public Use
  Company Number: 2014P1000793

PATIENT
  Age: 85 Year
  Sex: Male

DRUGS (15)
  1. HYDROXYCHLOROQUINE [Suspect]
     Indication: RHEUMATOID ARTHRITIS
     Route: 048
  2. METHOTREXATE [Suspect]
     Indication: RHEUMATOID ARTHRITIS
     Dosage: 8 ML , QIW ;SC
     Route: 058
  3. DILTIAZEM [Concomitant]
  4. TERAZOSIN [Concomitant]
  5. ALBUTEROL [Concomitant]
  6. FLUTICASONE HFA [Concomitant]
  7. ALBUTEROL [Concomitant]
  8. IPRATROPIUM [Concomitant]
  9. NYSTATIN [Concomitant]
  10. TRAMADOL [Concomitant]
  11. FUROSEMIDE [Concomitant]
  12. MULTIVITAMINS [Concomitant]
  13. GLUCOSAMINE [Concomitant]
  14. CALCIUM [Concomitant]
  15. FOLIC ACID [Concomitant]

REACTIONS (5)
  - Visual field defect [None]
  - Detachment of retinal pigment epithelium [None]
  - Maculopathy [None]
  - Renal failure [None]
  - Maculopathy [None]
